FAERS Safety Report 7016097-9 (Version None)
Quarter: 2010Q3

REPORT INFORMATION
  Report Type: 
  Country: None (occurrence: None)
  Receive Date: 20100927
  Receipt Date: 20100914
  Transmission Date: 20110219
  Serious: Yes (Hospitalization, Other)
  Sender: FDA-Public Use
  Company Number: US-WATSON-2010-12563

PATIENT
  Age: 65 Year
  Sex: Female

DRUGS (4)
  1. TRIHEXYPHENIDYL HYDROCHLORIDE [Suspect]
     Indication: PARKINSON'S DISEASE
     Dosage: UNK
  2. CARBIDOPA AND LEVODOPA [Suspect]
     Indication: PARKINSON'S DISEASE
     Dosage: UNK
  3. RASAGILINE [Suspect]
     Indication: PARKINSON'S DISEASE
     Dosage: UNK
  4. PRAMIPEXOLE [Suspect]
     Indication: PARKINSON'S DISEASE
     Dosage: UNK

REACTIONS (2)
  - CORONARY ARTERY DISSECTION [None]
  - MYOCARDIAL INFARCTION [None]
